FAERS Safety Report 13929016 (Version 3)
Quarter: 2017Q3

REPORT INFORMATION
  Report Type: Spontaneous
  Country: CA (occurrence: CA)
  Receive Date: 20170901
  Receipt Date: 20170914
  Transmission Date: 20171127
  Serious: No
  Sender: FDA-Public Use
  Company Number: CA-ORION CORPORATION ORION PHARMA-TREX2017-2679

PATIENT
  Sex: Female

DRUGS (2)
  1. METHOTREXATE (TRADE NAME UNKNOWN) [Suspect]
     Active Substance: METHOTREXATE
     Indication: SAPHO SYNDROME
     Route: 065
  2. AREDIA [Suspect]
     Active Substance: PAMIDRONATE DISODIUM
     Route: 065
     Dates: start: 201602, end: 201706

REACTIONS (1)
  - Drug ineffective for unapproved indication [Unknown]
